FAERS Safety Report 17081976 (Version 5)
Quarter: 2020Q1

REPORT INFORMATION
  Report Type: Spontaneous
  Country: US (occurrence: US)
  Receive Date: 20191127
  Receipt Date: 20200224
  Transmission Date: 20200409
  Serious: No
  Sender: FDA-Public Use
  Company Number: US-PFIZER INC-2019505337

PATIENT

DRUGS (2)
  1. FENTANYL CITRATE. [Interacting]
     Active Substance: FENTANYL CITRATE
     Dosage: 100 UG, UNK,(4 DOSES OF 100MCG INTRAVENOUS PUSH FROM 4 DIFFERENT VIALS)
     Route: 042
  2. FENTANYL CITRATE. [Suspect]
     Active Substance: FENTANYL CITRATE
     Indication: PAIN
     Dosage: 100 UG, UNK (STRENGTH: 100 MCG/2ML)
     Route: 042
     Dates: start: 20191115

REACTIONS (6)
  - Poor quality product administered [Unknown]
  - Alcohol interaction [Unknown]
  - Suspected product tampering [Unknown]
  - Drug ineffective [Unknown]
  - Product container issue [Unknown]
  - Product storage error [Unknown]

NARRATIVE: CASE EVENT DATE: 20191115
